FAERS Safety Report 22251690 (Version 6)
Quarter: 2023Q2

REPORT INFORMATION
  Report Type: Report from Study
  Country: US (occurrence: US)
  Receive Date: 20230425
  Receipt Date: 20230524
  Transmission Date: 20230721
  Serious: Yes (Other)
  Sender: FDA-Public Use
  Company Number: US-JAZZ PHARMACEUTICALS-2023-US-008349

PATIENT
  Age: 24 Year
  Sex: Female

DRUGS (4)
  1. XYREM [Suspect]
     Active Substance: SODIUM OXYBATE
     Indication: Narcolepsy
     Dosage: UNK
  2. XYREM [Suspect]
     Active Substance: SODIUM OXYBATE
     Indication: Cataplexy
  3. XYREM [Suspect]
     Active Substance: SODIUM OXYBATE
     Indication: Somnolence
  4. BACLOFEN [Concomitant]
     Active Substance: BACLOFEN
     Indication: Product used for unknown indication
     Dosage: UNK
     Dates: start: 20230130

REACTIONS (15)
  - Seizure [Unknown]
  - Macular oedema [Recovered/Resolved]
  - Peripheral swelling [Recovered/Resolved]
  - Abdominal discomfort [Unknown]
  - Rash macular [Recovered/Resolved]
  - Respiration abnormal [Unknown]
  - Migraine [Unknown]
  - Illness [Unknown]
  - Dyspepsia [Unknown]
  - Fluid retention [Unknown]
  - Nausea [Recovered/Resolved]
  - Decreased appetite [Unknown]
  - Insomnia [Unknown]
  - Headache [Unknown]
  - Treatment noncompliance [Unknown]

NARRATIVE: CASE EVENT DATE: 20230412
